FAERS Safety Report 17272119 (Version 1)
Quarter: 2020Q1

REPORT INFORMATION
  Report Type: Spontaneous
  Country: US (occurrence: US)
  Receive Date: 20191223
  Receipt Date: 20191223
  Transmission Date: 20200409
  Serious: No
  Sender: FDA-Public Use
  Company Number: None

PATIENT
  Age: 68 Year
  Sex: Male
  Weight: 81 kg

DRUGS (1)
  1. CARBOPLATIN (CARBOPLATIN 10MG/ML INJ, SOLN) [Suspect]
     Active Substance: CARBOPLATIN
     Indication: NEOPLASM MALIGNANT
     Route: 042
     Dates: start: 20191108

REACTIONS (3)
  - Chest pain [None]
  - Pain in extremity [None]
  - Hypertension [None]

NARRATIVE: CASE EVENT DATE: 20191108
